FAERS Safety Report 12518172 (Version 1)
Quarter: 2016Q2

REPORT INFORMATION
  Report Type: Spontaneous
  Country: US (occurrence: US)
  Receive Date: 20160630
  Receipt Date: 20160630
  Transmission Date: 20160815
  Serious: No
  Sender: FDA-Public Use
  Company Number: US-PERRIGO-15US006644

PATIENT
  Age: 76 Year
  Sex: Male
  Weight: 58.96 kg

DRUGS (1)
  1. GENTAMICIN SULFATE. [Suspect]
     Active Substance: GENTAMICIN SULFATE
     Indication: WOUND
     Dosage: GENEROUS AMOUNT, DAILY AS NEEDED
     Route: 061
     Dates: start: 201506, end: 20150625

REACTIONS (2)
  - Skin discolouration [Not Recovered/Not Resolved]
  - Incorrect dose administered [Recovered/Resolved]

NARRATIVE: CASE EVENT DATE: 201506
